FAERS Safety Report 4389812-0 (Version None)
Quarter: 2004Q2

REPORT INFORMATION
  Report Type: 
  Country: None (occurrence: None)
  Receive Date: 20040630
  Receipt Date: 20040614
  Transmission Date: 20050107
  Serious: Yes (Hospitalization)
  Sender: FDA-Public Use
  Company Number: A0514548A

PATIENT
  Age: 72 Year
  Sex: Female

DRUGS (3)
  1. NICODERM CQ [Suspect]
     Indication: EX-SMOKER
     Dosage: 21 MG TRANSDERMAL
     Route: 062
     Dates: start: 20040401
  2. AMLODIPINE [Concomitant]
  3. CLONIDINE HCL [Concomitant]

REACTIONS (6)
  - APPLICATION SITE REACTION [None]
  - APPLICATION SITE VESICLES [None]
  - CARDIAC FAILURE CONGESTIVE [None]
  - DIALYSIS [None]
  - HYPERTENSION [None]
  - RENAL FAILURE [None]
